FAERS Safety Report 19367536 (Version 1)
Quarter: 2021Q2

REPORT INFORMATION
  Report Type: Report from Study
  Country: None (occurrence: CO)
  Receive Date: 20210603
  Receipt Date: 20210603
  Transmission Date: 20210717
  Serious: Yes (Hospitalization, Other)
  Sender: FDA-Public Use
  Company Number: CO-ABBVIE-21K-036-3796046-00

PATIENT
  Sex: Male

DRUGS (4)
  1. MAXOLON [Concomitant]
     Active Substance: METOCLOPRAMIDE HYDROCHLORIDE
     Indication: PRODUCT USED FOR UNKNOWN INDICATION
  2. BETAMETHASONE. [Concomitant]
     Active Substance: BETAMETHASONE
     Indication: PRODUCT USED FOR UNKNOWN INDICATION
  3. HUMIRA [Suspect]
     Active Substance: ADALIMUMAB
     Indication: RHEUMATOID ARTHRITIS
     Route: 058
     Dates: start: 20191209, end: 20200311
  4. PREDNISOLONE. [Concomitant]
     Active Substance: PREDNISOLONE
     Indication: PRODUCT USED FOR UNKNOWN INDICATION

REACTIONS (19)
  - Gastric disorder [Not Recovered/Not Resolved]
  - Painful respiration [Recovering/Resolving]
  - Back pain [Not Recovered/Not Resolved]
  - Pneumonia [Recovering/Resolving]
  - Skin disorder [Recovered/Resolved]
  - Fungal infection [Recovered/Resolved]
  - Chest pain [Unknown]
  - Helicobacter infection [Not Recovered/Not Resolved]
  - Throat clearing [Not Recovered/Not Resolved]
  - Neuritis [Not Recovered/Not Resolved]
  - Gait disturbance [Recovering/Resolving]
  - Arthritis [Recovering/Resolving]
  - Neck pain [Unknown]
  - Rheumatoid arthritis [Recovering/Resolving]
  - Inflammation [Unknown]
  - Asphyxia [Not Recovered/Not Resolved]
  - COVID-19 [Recovered/Resolved with Sequelae]
  - Musculoskeletal chest pain [Recovering/Resolving]
  - Pain in extremity [Unknown]

NARRATIVE: CASE EVENT DATE: 2020
